FAERS Safety Report 19746787 (Version 1)
Quarter: 2021Q3

REPORT INFORMATION
  Report Type: Spontaneous
  Country: IT (occurrence: IT)
  Receive Date: 20210826
  Receipt Date: 20210826
  Transmission Date: 20211014
  Serious: Yes (Other)
  Sender: FDA-Public Use
  Company Number: IT-AUROBINDO-AUR-APL-2021-035889

PATIENT
  Age: 3 Year
  Sex: Male
  Weight: 14 kg

DRUGS (1)
  1. CETIRIZINE [Suspect]
     Active Substance: CETIRIZINE HYDROCHLORIDE
     Indication: HYPERSENSITIVITY
     Dosage: 8 MILLIGRAM, ONCE A DAY
     Route: 048

REACTIONS (4)
  - Dystonia [Unknown]
  - Increased appetite [Unknown]
  - Aggression [Unknown]
  - Tic [Unknown]

NARRATIVE: CASE EVENT DATE: 20210730
